FAERS Safety Report 5536361-X (Version None)
Quarter: 2007Q4

REPORT INFORMATION
  Report Type: 
  Country: None (occurrence: None)
  Receive Date: 20071206
  Receipt Date: 20071126
  Transmission Date: 20080405
  Serious: Yes (Other)
  Sender: FDA-Public Use
  Company Number: JP-PFIZER INC-2007099470

PATIENT
  Age: 68 Year
  Sex: Male

DRUGS (1)
  1. DIFLUCAN [Suspect]
     Dosage: DAILY DOSE:100MG
     Route: 042

REACTIONS (2)
  - MYOGLOBINURIA [None]
  - RENAL FAILURE [None]
